FAERS Safety Report 8397184-X (Version None)
Quarter: 2012Q2

REPORT INFORMATION
  Report Type: 
  Country: None (occurrence: None)
  Receive Date: 20120530
  Receipt Date: 20120523
  Transmission Date: 20120825
  Serious: Yes (Other)
  Sender: FDA-Public Use
  Company Number: FI-PFIZER INC-2012125652

PATIENT
  Age: 25 Year
  Sex: Female

DRUGS (1)
  1. SULFASALAZINE [Suspect]
     Dosage: 1000 MG, 2X/DAY

REACTIONS (3)
  - OROPHARYNGEAL PAIN [None]
  - ANOGENITAL WARTS [None]
  - BENIGN BREAST NEOPLASM [None]
